FAERS Safety Report 15869546 (Version 2)
Quarter: 2019Q1

REPORT INFORMATION
  Report Type: Spontaneous
  Country: BE (occurrence: BE)
  Receive Date: 20190125
  Receipt Date: 20190201
  Transmission Date: 20190417
  Serious: Yes (Hospitalization, Other)
  Sender: FDA-Public Use
  Company Number: BE-PFIZER INC-2019030809

PATIENT
  Age: 59 Year
  Sex: Male

DRUGS (2)
  1. LEDERTREXATE [Suspect]
     Active Substance: METHOTREXATE
     Indication: SYSTEMIC SCLERODERMA
     Dosage: 20 MG, WEEKLY
  2. METHYLPREDNISOLONE. [Suspect]
     Active Substance: METHYLPREDNISOLONE
     Indication: SYSTEMIC SCLERODERMA
     Dosage: 6 MG, 1X/DAY

REACTIONS (3)
  - Pneumocystis jirovecii infection [Recovering/Resolving]
  - Hypercalcaemia [Recovering/Resolving]
  - Acute kidney injury [Recovering/Resolving]
